FAERS Safety Report 6492268-5 (Version None)
Quarter: 2009Q4

REPORT INFORMATION
  Report Type: 
  Country: None (occurrence: None)
  Receive Date: 20091214
  Receipt Date: 20091209
  Transmission Date: 20100525
  Serious: Yes (Life-Threatening, Hospitalization, Other)
  Sender: FDA-Public Use
  Company Number: PHHY2009GB50734

PATIENT
  Sex: Male

DRUGS (5)
  1. CLOZARIL [Suspect]
     Indication: SCHIZOPHRENIA
     Dosage: 275 MG, UNK
     Route: 048
     Dates: start: 20060509, end: 20091106
  2. CLOZARIL [Suspect]
     Indication: PSYCHOTIC DISORDER
  3. CITALOPRAM HYDROBROMIDE [Concomitant]
     Indication: DEPRESSION
     Dosage: 10 MG, UNK
     Route: 048
  4. ESOMEPRAZOLE [Concomitant]
     Indication: GASTROOESOPHAGEAL REFLUX DISEASE
     Dosage: 40 MG, UNK
     Route: 048
  5. NULYTELY [Concomitant]
     Indication: CONSTIPATION
     Dosage: ALTERNATE DAYS
     Route: 048

REACTIONS (5)
  - ABDOMINAL ADHESIONS [None]
  - HIP FRACTURE [None]
  - SMALL INTESTINAL OBSTRUCTION [None]
  - SMALL INTESTINAL RESECTION [None]
  - VOMITING [None]
